FAERS Safety Report 8586110-6 (Version None)
Quarter: 2012Q3

REPORT INFORMATION
  Report Type: 
  Country: None (occurrence: None)
  Receive Date: 20120810
  Receipt Date: 20120731
  Transmission Date: 20120928
  Serious: Yes (Hospitalization)
  Sender: FDA-Public Use
  Company Number: GB-ROCHE-1095757

PATIENT
  Sex: Female
  Weight: 71 kg

DRUGS (2)
  1. MABTHERA [Suspect]
     Indication: PRODUCT USED FOR UNKNOWN INDICATION
     Dates: start: 20110513
  2. METHOTREXATE [Concomitant]

REACTIONS (2)
  - IMMOBILE [None]
  - FALL [None]
